FAERS Safety Report 23247835 (Version 1)
Quarter: 2023Q4

REPORT INFORMATION
  Report Type: Spontaneous
  Country: US (occurrence: US)
  Receive Date: 20231130
  Receipt Date: 20231130
  Transmission Date: 20240110
  Serious: No
  Sender: FDA-Public Use
  Company Number: US-SA-SAC20231129001303

PATIENT
  Sex: Male

DRUGS (5)
  1. ALTUVIIIO [Suspect]
     Active Substance: EFANESOCTOCOG ALFA
     Indication: Factor VIII deficiency
     Dosage: 3788 IU (INFUSE ONE 3263 UNIT VIAL AND ONE 525 UNIT VIAL), QW FOR BLEED PREVENTION
     Route: 042
     Dates: start: 20230810
  2. ALTUVIIIO [Suspect]
     Active Substance: EFANESOCTOCOG ALFA
     Dosage: 3750 IU, QW (+1-10%)
     Route: 042
     Dates: start: 20230810
  3. ADVATE [Concomitant]
     Active Substance: ANTIHEMOPHILIC FACTOR, HUMAN RECOMBINANT
     Dosage: UNK
  4. FUROSEMIDE [Concomitant]
     Active Substance: FUROSEMIDE
     Dosage: UNK
  5. JIVI [ANTIHEMOPHILIC FACTOR (RECOMBINANT), PEGYLATED AUCL] [Concomitant]
     Dosage: UNK

REACTIONS (3)
  - Joint effusion [Unknown]
  - Arthralgia [Unknown]
  - Injury [Unknown]

NARRATIVE: CASE EVENT DATE: 20230101
